FAERS Safety Report 9435302 (Version 1)
Quarter: 2013Q3

REPORT INFORMATION
  Report Type: Spontaneous
  Country: US (occurrence: US)
  Receive Date: 20130801
  Receipt Date: 20130801
  Transmission Date: 20140515
  Serious: No
  Sender: FDA-Public Use
  Company Number: US-009507513-1307USA006852

PATIENT
  Sex: Male

DRUGS (1)
  1. PEGINTRON [Suspect]
     Indication: HEPATITIS C
     Dosage: 1 DF, QW, 150 MCG/0.5 ML. REDIPEN
     Route: 058

REACTIONS (3)
  - Weight decreased [Unknown]
  - Headache [Unknown]
  - Irritability [Unknown]
